FAERS Safety Report 10775808 (Version 1)
Quarter: 2015Q1

REPORT INFORMATION
  Report Type: Spontaneous
  Country: NO (occurrence: NO)
  Receive Date: 20150209
  Receipt Date: 20150209
  Transmission Date: 20150721
  Serious: Yes (Other)
  Sender: FDA-Public Use
  Company Number: NO-TEVA-539007ISR

PATIENT
  Age: 34 Year
  Sex: Female

DRUGS (1)
  1. CODAXOL [Suspect]
     Active Substance: ACETAMINOPHEN\CODEINE PHOSPHATE
     Route: 048

REACTIONS (4)
  - Nausea [Recovered/Resolved]
  - Product substitution issue [Recovered/Resolved]
  - Choking sensation [Recovered/Resolved]
  - Throat tightness [Recovered/Resolved]
